FAERS Safety Report 23355642 (Version 2)
Quarter: 2024Q1

REPORT INFORMATION
  Report Type: Spontaneous
  Country: US (occurrence: US)
  Receive Date: 20240102
  Receipt Date: 20240328
  Transmission Date: 20240410
  Serious: Yes (Disabling)
  Sender: FDA-Public Use
  Company Number: US-SA-SAC20231225000209

PATIENT
  Age: 43 Year
  Sex: Female

DRUGS (2)
  1. DUPIXENT [Suspect]
     Active Substance: DUPILUMAB
     Indication: Eczema
     Dosage: 600 MG, 1X
     Route: 058
     Dates: start: 20230816, end: 20230816
  2. DUPIXENT [Suspect]
     Active Substance: DUPILUMAB
     Dosage: 300 MG, QOW
     Route: 058
     Dates: start: 20230829

REACTIONS (10)
  - Loss of personal independence in daily activities [Unknown]
  - Affective disorder [Unknown]
  - Illness [Unknown]
  - Cough [Recovering/Resolving]
  - Eczema [Unknown]
  - Pruritus [Unknown]
  - Erythema [Unknown]
  - Skin swelling [Unknown]
  - Skin burning sensation [Unknown]
  - Inappropriate schedule of product administration [Unknown]

NARRATIVE: CASE EVENT DATE: 20230829
